FAERS Safety Report 8120913-7 (Version None)
Quarter: 2012Q1

REPORT INFORMATION
  Report Type: 
  Country: None (occurrence: None)
  Receive Date: 20120208
  Receipt Date: 20120126
  Transmission Date: 20120608
  Serious: Yes (Hospitalization)
  Sender: FDA-Public Use
  Company Number: US-ELI_LILLY_AND_COMPANY-US201110001053

PATIENT
  Sex: Female

DRUGS (19)
  1. FORTEO [Suspect]
     Dosage: 20 UG, QD
  2. VITAMIN B-12 [Concomitant]
     Dosage: 1 MG, QD
  3. FORTEO [Suspect]
     Dosage: 20 UG, QD
  4. METHENAMINE TAB [Concomitant]
     Dosage: 2 DF, QD
  5. PREDNISONE [Concomitant]
     Dosage: 3 DF, QD
  6. METHYLIN [Concomitant]
     Dosage: 2 DF, QD
  7. TRAMADOL HCL [Concomitant]
     Indication: PAIN
     Dosage: 0.5 DF, PRN
  8. OMEPRAZOLE [Concomitant]
     Dosage: 2 DF, QD
  9. ZOLPIDEM TARTRATE [Concomitant]
     Dosage: 1 DF, EACH EVENING
  10. OS-CAL 500 + D [Concomitant]
     Dosage: 1 DF, BID
  11. PYRIDOXINE HCL [Concomitant]
     Dosage: 1 DF, QD
  12. FOLIC ACID [Concomitant]
     Dosage: 1 DF, EACH MORNING
  13. SENOKOT [Concomitant]
     Dosage: 2 DF, EACH EVENING
  14. FORTEO [Suspect]
     Indication: OSTEOPOROSIS
     Dosage: 20 UG, QD
     Route: 065
     Dates: start: 20110801, end: 20110929
  15. FLUOXETINE HYDROCHLORIDE [Concomitant]
     Dosage: 1 DF, EACH MORNING
  16. LISINOPRIL [Concomitant]
     Dosage: 1 DF, QD
  17. METOPROLOL TARTRATE [Concomitant]
     Dosage: 0.5 DF, QD
  18. ASCORBIC ACID [Concomitant]
     Dosage: 1000 MG, BID
  19. COLACE [Concomitant]
     Dosage: 1 DF, EACH MORNING

REACTIONS (8)
  - MEMORY IMPAIRMENT [None]
  - INSOMNIA [None]
  - BACK PAIN [None]
  - ADVERSE EVENT [None]
  - URINARY TRACT INFECTION [None]
  - ARTHRITIS [None]
  - LETHARGY [None]
  - INTENTIONAL DRUG MISUSE [None]
